FAERS Safety Report 25546038 (Version 1)
Quarter: 2025Q3

REPORT INFORMATION
  Report Type: Spontaneous
  Country: TN (occurrence: TN)
  Receive Date: 20250712
  Receipt Date: 20250712
  Transmission Date: 20251021
  Serious: Yes (Other)
  Sender: STRIDES
  Company Number: TN-STRIDES ARCOLAB LIMITED-2025SP008574

PATIENT
  Age: 82 Year
  Sex: Male

DRUGS (1)
  1. METHOTREXATE SODIUM [Suspect]
     Active Substance: METHOTREXATE SODIUM
     Indication: Psoriasis
     Route: 048

REACTIONS (3)
  - Mucocutaneous toxicity [Recovered/Resolved]
  - Mucocutaneous ulceration [Recovered/Resolved]
  - Intentional product misuse [Unknown]
